FAERS Safety Report 25633418 (Version 1)
Quarter: 2025Q3

REPORT INFORMATION
  Report Type: Spontaneous
  Country: CA (occurrence: CA)
  Receive Date: 20250801
  Receipt Date: 20250801
  Transmission Date: 20251021
  Serious: Yes (Hospitalization, Other)
  Sender: ALEXION PHARMACEUTICALS
  Company Number: None

PATIENT
  Sex: Female

DRUGS (4)
  1. LYNPARZA [Suspect]
     Active Substance: OLAPARIB
     Route: 065
  2. LYNPARZA [Suspect]
     Active Substance: OLAPARIB
     Route: 065
  3. LYNPARZA [Suspect]
     Active Substance: OLAPARIB
     Route: 065
  4. LYNPARZA [Suspect]
     Active Substance: OLAPARIB
     Route: 065

REACTIONS (14)
  - Atrial fibrillation [Unknown]
  - Carbohydrate antigen 125 increased [Unknown]
  - Cardiac disorder [Unknown]
  - Condition aggravated [Unknown]
  - Fatigue [Unknown]
  - Heart rate increased [Unknown]
  - Malaise [Unknown]
  - Malignant melanoma [Unknown]
  - Mobility decreased [Unknown]
  - Nausea [Unknown]
  - Off label use [Unknown]
  - Ovarian cancer metastatic [Unknown]
  - Sleep disorder [Unknown]
  - Weight abnormal [Unknown]
